FAERS Safety Report 12521472 (Version 2)
Quarter: 2016Q3

REPORT INFORMATION
  Report Type: Report from Study
  Country: US (occurrence: US)
  Receive Date: 20160701
  Receipt Date: 20160712
  Transmission Date: 20161109
  Serious: Yes (Death, Hospitalization)
  Sender: FDA-Public Use
  Company Number: US-ACTELION-A-NJ2016-138626

PATIENT
  Age: 55 Year
  Sex: Female

DRUGS (7)
  1. REVATIO [Concomitant]
     Active Substance: SILDENAFIL CITRATE
  2. TORSEMIDE. [Concomitant]
     Active Substance: TORSEMIDE
  3. COUMADIN [Concomitant]
     Active Substance: WARFARIN SODIUM
  4. TREPROSTINIL DIOLAMIN [Concomitant]
     Active Substance: TREPROSTINIL DIOLAMINE
  5. METOLAZONE. [Concomitant]
     Active Substance: METOLAZONE
  6. MIDODRINE [Concomitant]
     Active Substance: MIDODRINE
  7. TRACLEER [Suspect]
     Active Substance: BOSENTAN
     Indication: PULMONARY HYPERTENSION
     Dosage: 125 MG, BID
     Route: 048
     Dates: start: 20051220, end: 20160622

REACTIONS (3)
  - Death [Fatal]
  - Pain [Unknown]
  - Malaise [Unknown]

NARRATIVE: CASE EVENT DATE: 20160622
